FAERS Safety Report 25366819 (Version 1)
Quarter: 2025Q2

REPORT INFORMATION
  Report Type: Spontaneous
  Country: FR (occurrence: FR)
  Receive Date: 20250528
  Receipt Date: 20250528
  Transmission Date: 20250716
  Serious: Yes (Other)
  Sender: AUROBINDO
  Company Number: FR-AFSSAPS-MA2025000490

PATIENT
  Age: 70 Year
  Sex: Female

DRUGS (2)
  1. PROPRANOLOL [Suspect]
     Active Substance: PROPRANOLOL HYDROCHLORIDE
     Indication: Hypertension
     Route: 048
     Dates: start: 20250416
  2. PREDNISOLONE [Suspect]
     Active Substance: PREDNISOLONE
     Indication: Antiinflammatory therapy
     Route: 048

REACTIONS (2)
  - Hypotension [Recovered/Resolved]
  - Wrong product administered [Recovered/Resolved]

NARRATIVE: CASE EVENT DATE: 20250415
